FAERS Safety Report 24809033 (Version 1)
Quarter: 2025Q1

REPORT INFORMATION
  Report Type: Spontaneous
  Country: CA (occurrence: CA)
  Receive Date: 20250106
  Receipt Date: 20250106
  Transmission Date: 20250409
  Serious: Yes (Hospitalization)
  Sender: ROCHE
  Company Number: CA-ROCHE-10000170310

PATIENT
  Sex: Female

DRUGS (1)
  1. RITUXIMAB [Suspect]
     Active Substance: RITUXIMAB
     Indication: Neuromyelitis optica spectrum disorder
     Route: 065

REACTIONS (6)
  - Feeding disorder [Unknown]
  - Myalgia [Unknown]
  - Neuromyelitis optica spectrum disorder [Recovered/Resolved]
  - Gait inability [Recovered/Resolved]
  - Ill-defined disorder [Recovered/Resolved]
  - Off label use [Unknown]
